FAERS Safety Report 14940271 (Version 1)
Quarter: 2018Q2

REPORT INFORMATION
  Report Type: Report from Study
  Country: CN (occurrence: CN)
  Receive Date: 20180525
  Receipt Date: 20180525
  Transmission Date: 20180711
  Serious: Yes (Hospitalization)
  Sender: FDA-Public Use
  Company Number: CN-SA-2018SA064852

PATIENT
  Age: 14 Year
  Sex: Female
  Weight: 75 kg

DRUGS (10)
  1. BLINDED TERIFLUNOMIDE [Suspect]
     Active Substance: TERIFLUNOMIDE
     Indication: MULTIPLE SCLEROSIS RELAPSE
     Dosage: 1 DF,QD
     Route: 048
     Dates: start: 20170414, end: 20170615
  2. BLINDED NO STUDY DRUG GIVEN [Suspect]
     Active Substance: INVESTIGATIONAL PRODUCT
     Indication: MULTIPLE SCLEROSIS RELAPSE
     Dosage: 1 DF,QD
     Route: 048
     Dates: start: 20170414, end: 20170615
  3. BLINDED TERIFLUNOMIDE [Suspect]
     Active Substance: TERIFLUNOMIDE
     Indication: MULTIPLE SCLEROSIS RELAPSE
     Dosage: 1 DF,QD
     Route: 048
     Dates: start: 20170414, end: 20170615
  4. BLINDED PLACEBO [Suspect]
     Active Substance: INVESTIGATIONAL PRODUCT
     Dosage: 7 MG, QD
     Route: 048
     Dates: start: 20171129, end: 20180129
  5. BLINDED NO STUDY DRUG GIVEN [Suspect]
     Active Substance: INVESTIGATIONAL PRODUCT
     Dosage: 7 MG, QD
     Route: 048
     Dates: start: 20171129, end: 20180129
  6. BLINDED TERIFLUNOMIDE [Suspect]
     Active Substance: TERIFLUNOMIDE
     Dosage: 7 MG, QD
     Route: 048
     Dates: start: 20171129, end: 20180129
  7. ANISODAMINE [Concomitant]
     Active Substance: ANISODAMINE
     Dosage: 10 MG, QD
     Route: 048
  8. BLINDED PLACEBO [Suspect]
     Active Substance: INVESTIGATIONAL PRODUCT
     Indication: MULTIPLE SCLEROSIS RELAPSE
     Dosage: 1 DF,QD
     Route: 048
     Dates: start: 20170414, end: 20170615
  9. BLINDED TERIFLUNOMIDE [Suspect]
     Active Substance: TERIFLUNOMIDE
     Dosage: 7 MG, QD
     Route: 048
     Dates: start: 20171129, end: 20180129
  10. CITICOLINE [Concomitant]
     Active Substance: CITICOLINE
     Dosage: 0.2 G, QD
     Dates: start: 20171122

REACTIONS (14)
  - Abdominal tenderness [None]
  - Nausea [None]
  - Abdominal pain upper [None]
  - Hepatic calcification [None]
  - Hunger [None]
  - Pancreatic neoplasm [None]
  - Electrolyte imbalance [None]
  - Abdominal pain [None]
  - Pancreatitis acute [None]
  - Pancreatic disorder [Recovering/Resolving]
  - Back pain [None]
  - Lipase increased [Recovered/Resolved]
  - Solid pseudopapillary tumour of the pancreas [None]
  - Decreased appetite [None]

NARRATIVE: CASE EVENT DATE: 20180224
